FAERS Safety Report 17241631 (Version 1)
Quarter: 2020Q1

REPORT INFORMATION
  Report Type: Spontaneous
  Country: FR (occurrence: FR)
  Receive Date: 20200107
  Receipt Date: 20200107
  Transmission Date: 20200409
  Serious: Yes (Other)
  Sender: FDA-Public Use
  Company Number: FR-TEVA-2019-FR-1162604

PATIENT
  Age: 84 Year
  Sex: Female
  Weight: 65 kg

DRUGS (13)
  1. DAFALGAN [Concomitant]
     Active Substance: ACETAMINOPHEN
     Dosage: 3 GM
     Route: 048
  2. CEFOXITIN [Suspect]
     Active Substance: CEFOXITIN SODIUM
     Indication: URINARY TRACT INFECTION
     Dosage: 3 GM
     Route: 042
     Dates: start: 20191121, end: 20191123
  3. DAFALGAN [Concomitant]
     Active Substance: ACETAMINOPHEN
     Dosage: 160 MG
     Route: 048
  4. BETAHISTINE (CHLORHYDRATE) [Concomitant]
     Active Substance: BETAHISTINE HYDROCHLORIDE
     Indication: VERTIGO
     Dosage: 8 MG
     Route: 048
  5. BETAHISTINE (CHLORHYDRATE) [Concomitant]
     Active Substance: BETAHISTINE HYDROCHLORIDE
     Dosage: 160 MG
     Route: 048
  6. MACROGOL (DISTEARATE DE) [Concomitant]
     Active Substance: POLYETHYLENE GLYCOLS
     Indication: CONSTIPATION
     Dosage: 1 DOSAGE FORM
     Route: 048
  7. MIRTAZAPINE. [Suspect]
     Active Substance: MIRTAZAPINE
     Indication: DEPRESSION
     Dosage: 7.5 MG
     Route: 048
     Dates: start: 20191121, end: 20191122
  8. PROPRANOLOL [Concomitant]
     Active Substance: PROPRANOLOL HYDROCHLORIDE
     Indication: HYPERTENSION
     Dosage: 160 MG
     Route: 048
  9. MACROGOL (DISTEARATE DE) [Concomitant]
     Active Substance: POLYETHYLENE GLYCOLS
     Dosage: 160 MG
     Route: 048
  10. DAFALGAN [Concomitant]
     Active Substance: ACETAMINOPHEN
     Indication: PAIN
     Dosage: 3 GRAM
     Route: 048
  11. COVERAM [Concomitant]
     Active Substance: AMLODIPINE\PERINDOPRIL
     Indication: HYPERTENSION
     Dosage: 1 DOSAGE FORM
     Route: 048
  12. BETAHISTINE (CHLORHYDRATE) [Concomitant]
     Active Substance: BETAHISTINE HYDROCHLORIDE
     Dosage: 3 GM
     Route: 048
  13. PROPRANOLOL [Concomitant]
     Active Substance: PROPRANOLOL HYDROCHLORIDE
     Dosage: 160 MG
     Route: 048

REACTIONS (1)
  - Encephalopathy [Recovered/Resolved]

NARRATIVE: CASE EVENT DATE: 20191123
